FAERS Safety Report 24222060 (Version 1)
Quarter: 2024Q3

REPORT INFORMATION
  Report Type: Spontaneous
  Country: EG (occurrence: EG)
  Receive Date: 20240819
  Receipt Date: 20240819
  Transmission Date: 20241016
  Serious: Yes (Other)
  Sender: AMGEN
  Company Number: EG-PFIZER INC-PV202400106390

PATIENT
  Age: 29 Year
  Sex: Female

DRUGS (6)
  1. ENBREL [Suspect]
     Active Substance: BENZYL ALCOHOL\ETANERCEPT
     Indication: Rheumatoid arthritis
     Dosage: 50 MG, WEEKLY
     Route: 058
     Dates: start: 20231119
  2. METHOTREXATE [Concomitant]
     Active Substance: METHOTREXATE
     Indication: Rheumatoid arthritis
     Dosage: UNK
     Route: 065
  3. OST MAP [Concomitant]
     Indication: Product used for unknown indication
     Dosage: UNK, 2X/DAY (1 TAB EVERY 12 HOURS)
     Route: 065
  4. OMEPRAZOLE [Concomitant]
     Active Substance: OMEPRAZOLE
     Indication: Rheumatoid arthritis
     Dosage: 40 MG, DAILY (1 TAB AFTER FOOD)
     Route: 065
  5. FOLIC ACID [Concomitant]
     Active Substance: FOLIC ACID
     Indication: Rheumatoid arthritis
     Dosage: UNK, DAILY (1 TAB AFTER FOOD)
     Route: 065
  6. LEFLUNOMIDE [Concomitant]
     Active Substance: LEFLUNOMIDE
     Indication: Rheumatoid arthritis
     Dosage: 20 MG, DAILY (1 TAB AFTER LUNCH)
     Route: 065

REACTIONS (1)
  - Cardiac operation [Unknown]
